FAERS Safety Report 4296052-2 (Version None)
Quarter: 2004Q1

REPORT INFORMATION
  Report Type: 
  Country: None (occurrence: None)
  Receive Date: 20040212
  Receipt Date: 20040202
  Transmission Date: 20041129
  Serious: Yes (Other)
  Sender: FDA-Public Use
  Company Number: NSADSS2001014239

PATIENT
  Age: 27 Year
  Sex: Male
  Weight: 63.5036 kg

DRUGS (4)
  1. REMICADE [Suspect]
     Indication: CROHN'S DISEASE
     Dosage: 276 MG, 1 IN 1 AS NECESSARY, INTRAVENOUS DRIP
     Route: 041
     Dates: start: 20010305, end: 20010305
  2. ASACOL [Concomitant]
  3. PREDNISONE [Concomitant]
  4. ENTOCORT (BUDESONIDE) [Concomitant]

REACTIONS (3)
  - CROHN'S DISEASE [None]
  - DUBIN-JOHNSON SYNDROME [None]
  - URTICARIA [None]
